FAERS Safety Report 19363499 (Version 1)
Quarter: 2021Q2

REPORT INFORMATION
  Report Type: Spontaneous
  Country: CH (occurrence: CH)
  Receive Date: 20210602
  Receipt Date: 20210602
  Transmission Date: 20210717
  Serious: Yes (Hospitalization)
  Sender: FDA-Public Use
  Company Number: CH-PFIZER INC-2021581153

PATIENT
  Age: 25 Year
  Sex: Female

DRUGS (27)
  1. LEVETIRACETAM. [Suspect]
     Active Substance: LEVETIRACETAM
     Dosage: UNK (VIA NASOGASTRIC TUBE)
     Route: 050
     Dates: start: 20210326, end: 20210429
  2. NOVALGIN (METAMIZOLE SODIUM) [Suspect]
     Active Substance: METAMIZOLE SODIUM
     Dosage: 500 MG, AS NEEDED [(3X/DAY (MAXIMUM) BY NASOGASTRIC TUBE]
     Route: 050
     Dates: start: 20210403, end: 20210403
  3. CLEXANE [Concomitant]
     Active Substance: ENOXAPARIN SODIUM
     Dosage: UNK
     Route: 058
     Dates: start: 20210328
  4. VANCOMYCINE [VANCOMYCIN HYDROCHLORIDE] [Concomitant]
     Active Substance: VANCOMYCIN HYDROCHLORIDE
     Dosage: UNK
     Dates: start: 20210403, end: 20210406
  5. LEVETIRACETAM. [Suspect]
     Active Substance: LEVETIRACETAM
     Dosage: 250 TO 500MG, ONCE PER DAY
     Route: 042
     Dates: start: 20210403, end: 20210403
  6. DAFALGAN [Concomitant]
     Active Substance: ACETAMINOPHEN
     Indication: PAIN
     Dosage: AS NEEDED
     Dates: start: 20210326
  7. TRAMADOL. [Concomitant]
     Active Substance: TRAMADOL
     Dosage: UNK, SINGLE (NASOGASTRIC TUBE IN SINGLE DOSE)
     Route: 050
     Dates: start: 20210504, end: 20210504
  8. LEVETIRACETAM. [Suspect]
     Active Substance: LEVETIRACETAM
     Dosage: UNK (VIA NASOGASTRIC TUBE)
     Route: 050
     Dates: start: 20210506
  9. CEFTRIAXONE. [Suspect]
     Active Substance: CEFTRIAXONE
     Dosage: UNK
     Dates: start: 20210406, end: 20210416
  10. CATAPRESAN [CLONIDINE HYDROCHLORIDE] [Concomitant]
     Active Substance: CLONIDINE HYDROCHLORIDE
     Dosage: UNK (VIA NASOGASTRIC TUBE)
     Route: 050
     Dates: start: 20210426
  11. NIMODIPINE. [Concomitant]
     Active Substance: NIMODIPINE
     Dosage: UNK
     Dates: start: 20210325, end: 20210423
  12. VANCOMYCINE [VANCOMYCIN HYDROCHLORIDE] [Concomitant]
     Active Substance: VANCOMYCIN HYDROCHLORIDE
     Dosage: UNK
     Dates: start: 20210416, end: 20210420
  13. TEMESTA (LORAZEPAM) [Suspect]
     Active Substance: LORAZEPAM
     Dosage: 1 MG, AS NEEDED [(3X/DAY (MAXIMUM)]
     Route: 048
     Dates: start: 20210503
  14. NOVALGIN (METAMIZOLE SODIUM) [Suspect]
     Active Substance: METAMIZOLE SODIUM
     Dosage: 500 MG, AS NEEDED [(3X/DAY (MAXIMUM) BY NASOGASTRIC TUBE]
     Route: 050
     Dates: start: 20210503, end: 20210505
  15. AMIKACIN. [Suspect]
     Active Substance: AMIKACIN
     Dosage: UNK, (SINGLE DOSE)
     Dates: start: 20210404, end: 20210404
  16. INDERAL [Suspect]
     Active Substance: PROPRANOLOL HYDROCHLORIDE
     Dosage: 20 MG, EVERY 2 DAYS (ALSO REPORTED AS TWICE A DAY BY NASOGASTIC TUBE)
     Route: 050
     Dates: start: 20210423
  17. MOVICOL APELSIN [Concomitant]
     Active Substance: POLYETHYLENE GLYCOL 3350\POTASSIUM CHLORIDE\SODIUM BICARBONATE\SODIUM CHLORIDE
     Dosage: AS NEEDED
     Route: 048
  18. MEROPENEM. [Suspect]
     Active Substance: MEROPENEM
     Dosage: 2 G, EVERY 8 HOURS
     Route: 042
     Dates: start: 20210404
  19. NOVALGIN (METAMIZOLE SODIUM) [Suspect]
     Active Substance: METAMIZOLE SODIUM
     Dosage: 500 MG, AS NEEDED[(3X/DAY (MAXIMUM) BY NASOGASTRIC TUBE]
     Route: 050
     Dates: start: 20210424, end: 20210424
  20. LACOSAMIDE. [Suspect]
     Active Substance: LACOSAMIDE
     Dosage: 100 MG, EVERY 2 DAYS (ALSO REPORTED AS TWICE A DAY)
     Dates: start: 20210421, end: 20210505
  21. LEVETIRACETAM. [Suspect]
     Active Substance: LEVETIRACETAM
     Dosage: 250 TO 500MG, ONCE PER DAY
     Route: 042
     Dates: start: 20210325, end: 20210326
  22. MYCOSTATINE [Concomitant]
     Active Substance: NYSTATIN
     Dosage: UNK
     Route: 048
     Dates: start: 20210421
  23. AMLODIPINE [Concomitant]
     Active Substance: AMLODIPINE BESYLATE
     Dosage: UNK, SINGLE, (NASOGASTRIC TUBE IN SINGLE DOSE)
     Route: 050
     Dates: start: 20210421, end: 20210421
  24. LANSOPRAZOLE. [Concomitant]
     Active Substance: LANSOPRAZOLE
     Dosage: UNK (NASOGASTRIC TUBE)
     Route: 050
     Dates: start: 20210503, end: 20210504
  25. LEVETIRACETAM. [Suspect]
     Active Substance: LEVETIRACETAM
     Dosage: 250 TO 500MG, ONCE PER DAY
     Route: 042
     Dates: start: 20210323, end: 20210323
  26. NOVALGIN (METAMIZOLE SODIUM) [Suspect]
     Active Substance: METAMIZOLE SODIUM
     Indication: PAIN
     Dosage: 500 MG, AS NEEDED [(3X/DAY (MAXIMUM) BY NASOGASTRIC TUBE]
     Route: 050
     Dates: start: 20210325, end: 20210326
  27. LIORESAL [Concomitant]
     Active Substance: BACLOFEN
     Dosage: UNK (VIA NASOGASTRIC TUBE)
     Route: 050
     Dates: start: 20210426

REACTIONS (2)
  - Pyrexia [Not Recovered/Not Resolved]
  - Agranulocytosis [Not Recovered/Not Resolved]

NARRATIVE: CASE EVENT DATE: 20210505
